FAERS Safety Report 24165899 (Version 1)
Quarter: 2024Q3

REPORT INFORMATION
  Report Type: Spontaneous
  Country: ES (occurrence: ES)
  Receive Date: 20240802
  Receipt Date: 20240802
  Transmission Date: 20241017
  Serious: Yes (Life-Threatening, Hospitalization)
  Sender: TEVA
  Company Number: None

PATIENT
  Age: 58 Year
  Sex: Male

DRUGS (5)
  1. ALLOPURINOL [Interacting]
     Active Substance: ALLOPURINOL
     Indication: Hyperuricaemia
     Dosage: 1 TABLET A DAY, ALLOPURINOL (318A)
     Route: 048
     Dates: start: 20240612, end: 20240630
  2. CALCIFEDIOL [Concomitant]
     Active Substance: CALCIFEDIOL
     Indication: Product used for unknown indication
     Dosage: 10 CAPSULES (PVC/PVDC-ALUMINUM BLISTER)
     Route: 065
     Dates: start: 20240129, end: 20240630
  3. MUNTEL [Concomitant]
     Indication: Rhinitis allergic
     Dosage: 20 TABLETS
     Route: 048
     Dates: start: 20240112, end: 20240630
  4. CARBIMAZOLE [Concomitant]
     Active Substance: CARBIMAZOLE
     Indication: Hyperthyroidism
     Dosage: 50 TABLETS
     Route: 065
     Dates: start: 20240129, end: 20240630
  5. HYDROCHLOROTHIAZIDE\OLMESARTAN MEDOXOMIL [Interacting]
     Active Substance: HYDROCHLOROTHIAZIDE\OLMESARTAN MEDOXOMIL
     Indication: Hypertension
     Dosage: 40 MG/12.5 MG, 28 TABLETS
     Route: 048
     Dates: start: 20191125, end: 20240630

REACTIONS (1)
  - Stevens-Johnson syndrome [Recovering/Resolving]

NARRATIVE: CASE EVENT DATE: 20240625
